FAERS Safety Report 9338515 (Version 1)
Quarter: 2013Q2

REPORT INFORMATION
  Report Type: Spontaneous
  Country: AR (occurrence: AR)
  Receive Date: 20130610
  Receipt Date: 20130610
  Transmission Date: 20140414
  Serious: Yes (Other)
  Sender: FDA-Public Use
  Company Number: AR-JNJFOC-20130522244

PATIENT
  Sex: Female
  Weight: 51 kg

DRUGS (3)
  1. RISPERDAL [Suspect]
     Indication: ASPERGER^S DISORDER
     Route: 048
     Dates: start: 2000
  2. RISPERDAL [Suspect]
     Indication: MENTAL DISORDER
     Route: 048
     Dates: start: 2000
  3. TEGRETOL [Concomitant]
     Indication: PRODUCT USED FOR UNKNOWN INDICATION
     Route: 048

REACTIONS (2)
  - Coeliac disease [Unknown]
  - Off label use [Unknown]
